FAERS Safety Report 9291060 (Version 3)
Quarter: 2014Q1

REPORT INFORMATION
  Report Type: Spontaneous
  Country: US (occurrence: None)
  Receive Date: 20121017
  Receipt Date: 20140313
  Transmission Date: 20141002
  Serious: Yes (Other)
  Sender: FDA-Public Use
  Company Number: ADR-2012-00852

PATIENT
  Sex: Male

DRUGS (1)
  1. BACLOFEN [Suspect]
     Indication: MUSCLE SPASTICITY

REACTIONS (8)
  - Abasia [None]
  - Mobility decreased [None]
  - Disease progression [None]
  - Pain [None]
  - Performance status decreased [None]
  - Hypotonia [None]
  - Muscle spasticity [None]
  - Myelomalacia [None]
